APPROVED DRUG PRODUCT: CLARISCAN
Active Ingredient: GADOTERATE MEGLUMINE
Strength: 1.8845GM/5ML (376.9MG/ML)
Dosage Form/Route: SOLUTION;INTRAVENOUS
Application: A210016 | Product #005 | TE Code: AP
Applicant: GE HEALTHCARE
Approved: Nov 24, 2020 | RLD: No | RS: No | Type: RX